FAERS Safety Report 11753405 (Version 2)
Quarter: 2015Q4

REPORT INFORMATION
  Report Type: Spontaneous
  Country: ES (occurrence: ES)
  Receive Date: 20151119
  Receipt Date: 20151217
  Transmission Date: 20160304
  Serious: Yes (Other)
  Sender: FDA-Public Use
  Company Number: ES-ACTAVIS-2015-25113

PATIENT
  Age: 47 Year
  Sex: Female

DRUGS (2)
  1. PANTOPRAZOLE SODIUM. [Suspect]
     Active Substance: PANTOPRAZOLE SODIUM
     Indication: ABDOMINAL PAIN
     Dosage: 20 MG, SINGLE
     Route: 042
  2. METAMIZOLE SODIUM (UNKNOWN) [Suspect]
     Active Substance: METAMIZOLE SODIUM
     Indication: ABDOMINAL PAIN
     Dosage: 2000 MG, SINGLE
     Route: 042

REACTIONS (1)
  - Anaphylactic shock [Recovered/Resolved]
